FAERS Safety Report 23705646 (Version 2)
Quarter: 2024Q2

REPORT INFORMATION
  Report Type: Spontaneous
  Country: US (occurrence: US)
  Receive Date: 20240404
  Receipt Date: 20240417
  Transmission Date: 20240716
  Serious: Yes (Other)
  Sender: FDA-Public Use
  Company Number: US-BAUSCHBL-2024BNL003869

PATIENT
  Age: 70 Year
  Sex: Male
  Weight: 70.37 kg

DRUGS (1)
  1. LATANOPROST [Suspect]
     Active Substance: LATANOPROST
     Indication: Ocular hypertension
     Dosage: EACH EYE AT BEDTIME, 1 DROP IN EACH EYE
     Route: 061
     Dates: start: 2021, end: 2022

REACTIONS (2)
  - Retinoschisis [Recovered/Resolved]
  - Condition aggravated [Recovered/Resolved]
